FAERS Safety Report 4522068-4 (Version None)
Quarter: 2004Q4

REPORT INFORMATION
  Report Type: 
  Country: None (occurrence: None)
  Receive Date: 20041209
  Receipt Date: 20040830
  Transmission Date: 20050328
  Serious: No
  Sender: FDA-Public Use
  Company Number: US-MERCK-0408USA02352

PATIENT
  Age: 66 Year
  Sex: Female
  Weight: 95 kg

DRUGS (3)
  1. VIOXX [Suspect]
     Route: 048
  2. NORVASC [Concomitant]
     Route: 048
  3. LEVOXYL [Concomitant]
     Route: 048

REACTIONS (1)
  - ABDOMINAL PAIN [None]
